FAERS Safety Report 14722052 (Version 1)
Quarter: 2018Q2

REPORT INFORMATION
  Report Type: Report from Study
  Country: CA (occurrence: CA)
  Receive Date: 20180405
  Receipt Date: 20180405
  Transmission Date: 20180711
  Serious: Yes (Other)
  Sender: FDA-Public Use
  Company Number: CA-JNJFOC-20180345019

PATIENT
  Age: 70 Year
  Sex: Male
  Weight: 117.93 kg

DRUGS (1)
  1. SIMPONI [Suspect]
     Active Substance: GOLIMUMAB
     Indication: PSORIATIC ARTHROPATHY
     Route: 058
     Dates: start: 20170530, end: 20171212

REACTIONS (2)
  - Malignant melanoma [Unknown]
  - Post procedural infection [Unknown]

NARRATIVE: CASE EVENT DATE: 20171218
